FAERS Safety Report 11997633 (Version 1)
Quarter: 2016Q1

REPORT INFORMATION
  Report Type: Spontaneous
  Country: US (occurrence: US)
  Receive Date: 20160203
  Receipt Date: 20160203
  Transmission Date: 20160526
  Serious: No
  Sender: FDA-Public Use
  Company Number: US-ANACOR-2015ANA00169

PATIENT
  Sex: Female
  Weight: 49.89 kg

DRUGS (2)
  1. KERYDIN [Suspect]
     Active Substance: TAVABOROLE
     Indication: FUNGAL INFECTION
     Dosage: 1 GTT, 1X/DAY
     Route: 061
     Dates: start: 201508, end: 20151022
  2. KERYDIN [Suspect]
     Active Substance: TAVABOROLE
     Dosage: 1 GTT, 1X/DAY
     Route: 061
     Dates: start: 20151103

REACTIONS (4)
  - Blister [Recovering/Resolving]
  - Hypersensitivity [Recovering/Resolving]
  - Erythema [Recovering/Resolving]
  - Contusion [Unknown]

NARRATIVE: CASE EVENT DATE: 2015
